FAERS Safety Report 10651246 (Version 2)
Quarter: 2014Q4

REPORT INFORMATION
  Report Type: Spontaneous
  Country: CH (occurrence: CH)
  Receive Date: 20141215
  Receipt Date: 20141215
  Transmission Date: 20150529
  Serious: No
  Sender: FDA-Public Use
  Company Number: CH-BAYER-2014-163784

PATIENT
  Age: 53 Year
  Sex: Female

DRUGS (1)
  1. MIRENA [Suspect]
     Active Substance: LEVONORGESTREL
     Dosage: 20 MCG/24HR, CONT
     Route: 015
     Dates: start: 20140925, end: 20141106

REACTIONS (1)
  - Device expulsion [None]
